FAERS Safety Report 7023684-0 (Version None)
Quarter: 2010Q3

REPORT INFORMATION
  Report Type: 
  Country: None (occurrence: None)
  Receive Date: 20100930
  Receipt Date: 20100916
  Transmission Date: 20110219
  Serious: Yes (Hospitalization)
  Sender: FDA-Public Use
  Company Number: CA-MYLANLABS-2010S1016959

PATIENT
  Age: 36 Year
  Sex: Male

DRUGS (5)
  1. QUETIAPINE [Suspect]
     Indication: BIPOLAR DISORDER
     Route: 065
  2. LAMOTRIGINE [Suspect]
     Indication: BIPOLAR DISORDER
     Route: 065
  3. ZOPICLONE [Suspect]
     Indication: BIPOLAR DISORDER
     Route: 065
  4. LITHIUM [Concomitant]
     Indication: BIPOLAR DISORDER
     Route: 065
  5. INSULIN [Concomitant]
     Indication: TYPE 1 DIABETES MELLITUS

REACTIONS (2)
  - CHOLESTASIS [None]
  - HYPONATRAEMIA [None]
